FAERS Safety Report 9594902 (Version 2)
Quarter: 2013Q4

REPORT INFORMATION
  Report Type: Spontaneous
  Country: US (occurrence: US)
  Receive Date: 20131004
  Receipt Date: 20131004
  Transmission Date: 20140711
  Serious: No
  Sender: FDA-Public Use
  Company Number: US-PURDUE-USA-2012-0090347

PATIENT
  Age: 55 Year
  Sex: Male

DRUGS (1)
  1. BUTRANS [Suspect]
     Indication: PAIN
     Dosage: 20 MCG/HR, UNK
     Route: 062
     Dates: start: 2011

REACTIONS (3)
  - Inappropriate schedule of drug administration [Recovering/Resolving]
  - Drug ineffective [Recovered/Resolved]
  - Drug effect decreased [Recovered/Resolved]
